FAERS Safety Report 24904106 (Version 1)
Quarter: 2025Q1

REPORT INFORMATION
  Report Type: Spontaneous
  Country: US (occurrence: None)
  Receive Date: 20250129
  Receipt Date: 20250129
  Transmission Date: 20250409
  Serious: Yes (unspecified)
  Sender: FDA-CTU
  Company Number: None

PATIENT
  Age: 66 Year
  Sex: Male
  Weight: 83.25 kg

DRUGS (3)
  1. XIIDRA [Suspect]
     Active Substance: LIFITEGRAST
     Indication: Dry eye
     Dosage: FREQUENCY : TWICE A DAY;?
     Route: 047
     Dates: start: 20240722, end: 20241014
  2. FENOFIBRATE [Concomitant]
     Active Substance: FENOFIBRATE
  3. once a day adult vitamin [Concomitant]

REACTIONS (5)
  - Instillation site irritation [None]
  - Erythema of eyelid [None]
  - Erythema [None]
  - Application site exfoliation [None]
  - Therapy cessation [None]

NARRATIVE: CASE EVENT DATE: 20241014
